FAERS Safety Report 21504132 (Version 1)
Quarter: 2022Q4

REPORT INFORMATION
  Report Type: Spontaneous
  Country: US (occurrence: US)
  Receive Date: 20221025
  Receipt Date: 20221025
  Transmission Date: 20230113
  Serious: Yes (Other)
  Sender: FDA-Public Use
  Company Number: US-SA-SAC20221024000283

PATIENT
  Sex: Female

DRUGS (2)
  1. DUPIXENT [Suspect]
     Active Substance: DUPILUMAB
     Route: 065
  2. ADBRY [Suspect]
     Active Substance: TRALOKINUMAB-LDRM

REACTIONS (12)
  - Macular degeneration [Unknown]
  - Ocular hyperaemia [Unknown]
  - Condition aggravated [Unknown]
  - Skin fissures [Unknown]
  - Dry skin [Unknown]
  - Erythema of eyelid [Unknown]
  - Eye swelling [Unknown]
  - Swelling of eyelid [Unknown]
  - Erythema [Unknown]
  - Eyelid skin dryness [Unknown]
  - Dry eye [Unknown]
  - Eye pruritus [Unknown]
